FAERS Safety Report 11678946 (Version 1)
Quarter: 2015Q4

REPORT INFORMATION
  Report Type: Spontaneous
  Country: US (occurrence: US)
  Receive Date: 20151027
  Receipt Date: 20151027
  Transmission Date: 20160304
  Serious: No
  Sender: FDA-Public Use
  Company Number: US-ELI_LILLY_AND_COMPANY-US201007004205

PATIENT
  Sex: Female

DRUGS (4)
  1. FORTEO [Suspect]
     Active Substance: TERIPARATIDE
     Indication: OSTEOPOROSIS
     Dosage: 20 UG, DAILY (1/D)
     Route: 065
     Dates: start: 201007
  2. FORTEO [Suspect]
     Active Substance: TERIPARATIDE
     Dosage: 20 UG, DAILY (1/D)
     Route: 065
  3. ANTIBIOTICS [Concomitant]
     Active Substance: UNSPECIFIED INGREDIENT
     Indication: BRONCHITIS
  4. FORTEO [Suspect]
     Active Substance: TERIPARATIDE
     Dosage: 20 UG, DAILY (1/D)
     Route: 065
     Dates: end: 20101027

REACTIONS (18)
  - Injection site rash [Unknown]
  - Musculoskeletal pain [Not Recovered/Not Resolved]
  - Blister [Unknown]
  - Nail pigmentation [Unknown]
  - Arthralgia [Not Recovered/Not Resolved]
  - Hyperphagia [Unknown]
  - Hunger [Unknown]
  - Paraesthesia [Unknown]
  - Burning sensation [Unknown]
  - Dyspepsia [Unknown]
  - Injection site haemorrhage [Unknown]
  - Bone pain [Not Recovered/Not Resolved]
  - Pain in extremity [Not Recovered/Not Resolved]
  - Injection site bruising [Unknown]
  - Chest pain [Unknown]
  - Nausea [Unknown]
  - Arthritis [Unknown]
  - Musculoskeletal disorder [Unknown]
